FAERS Safety Report 10674591 (Version 1)
Quarter: 2014Q4

REPORT INFORMATION
  Report Type: Spontaneous
  Country: US (occurrence: None)
  Receive Date: 20141224
  Receipt Date: 20141224
  Transmission Date: 20150529
  Serious: No
  Sender: FDA-Public Use
  Company Number: DL2014-1156

PATIENT
  Age: 23 Year
  Sex: Female

DRUGS (2)
  1. MILFEPRISTONE TABLETS, 200MG [Suspect]
     Active Substance: MIFEPRISTONE
     Indication: ABORTION INDUCED
     Route: 048
     Dates: start: 20140918
  2. MISOPROSTOL TABLETS 200MCG [Suspect]
     Active Substance: MISOPROSTOL
     Dosage: 800MCG BUCCAL
     Route: 002
     Dates: start: 20140919

REACTIONS (2)
  - Haemorrhage [None]
  - Anaemia [None]

NARRATIVE: CASE EVENT DATE: 20140923
